FAERS Safety Report 5329786-9 (Version None)
Quarter: 2007Q2

REPORT INFORMATION
  Report Type: 
  Country: None (occurrence: None)
  Receive Date: 20070517
  Receipt Date: 20070517
  Transmission Date: 20071010
  Serious: Yes (Hospitalization)
  Sender: FDA-Public Use
  Company Number: None

PATIENT

DRUGS (12)
  1. REVLIMID [Suspect]
     Indication: MULTIPLE MYELOMA
     Dosage: 10MG DAILY 21D/28D PO
     Route: 048
  2. COUMADIN [Suspect]
     Indication: ATRIAL FIBRILLATION
     Dosage: 2MG DAILY PO
     Route: 048
  3. DIGOXIN [Concomitant]
  4. VYTORIN [Concomitant]
  5. FAMOTIDINE [Concomitant]
  6. GLYBURIDE [Concomitant]
  7. COUMADIN [Concomitant]
  8. SOTALOL HYDROCHLORIDE [Concomitant]
  9. LISINOPRIL [Concomitant]
  10. FENOFIBRATE [Concomitant]
  11. POTASSIUM ACETATE [Concomitant]
  12. AREDIA [Concomitant]

REACTIONS (2)
  - ANAEMIA [None]
  - GASTROINTESTINAL HAEMORRHAGE [None]
